FAERS Safety Report 10573191 (Version 1)
Quarter: 2014Q4

REPORT INFORMATION
  Report Type: Spontaneous
  Country: US (occurrence: None)
  Receive Date: 20141107
  Receipt Date: 20141107
  Transmission Date: 20150529
  Serious: Yes (Hospitalization)
  Sender: FDA-Public Use
  Company Number: None

PATIENT
  Age: 54 Year
  Sex: Male
  Weight: 147.87 kg

DRUGS (11)
  1. DEPAKOTE [Concomitant]
     Active Substance: DIVALPROEX SODIUM
  2. IBUPROFEN. [Suspect]
     Active Substance: IBUPROFEN
     Indication: GOUT
     Dosage: 1 TABLET
     Route: 048
     Dates: start: 20141101, end: 20141103
  3. ULORIC [Concomitant]
     Active Substance: FEBUXOSTAT
  4. TRIAMTERENE. [Concomitant]
     Active Substance: TRIAMTERENE
  5. HYDROCHLOROTHIAZIDE. [Concomitant]
     Active Substance: HYDROCHLOROTHIAZIDE
  6. GABAPENTIN. [Concomitant]
     Active Substance: GABAPENTIN
  7. SIMVASTATIN. [Concomitant]
     Active Substance: SIMVASTATIN
  8. ESCITALOPRAM [Concomitant]
     Active Substance: ESCITALOPRAM OXALATE
  9. INDOMETHACIN. [Concomitant]
     Active Substance: INDOMETHACIN
  10. AUGMENTIN [Concomitant]
     Active Substance: AMOXICILLIN\CLAVULANATE POTASSIUM
  11. MORPHINE [Concomitant]
     Active Substance: MORPHINE

REACTIONS (5)
  - Fall [None]
  - Psychiatric symptom [None]
  - Poor quality drug administered [None]
  - Expired product administered [None]
  - Blood creatinine increased [None]

NARRATIVE: CASE EVENT DATE: 20141031
